FAERS Safety Report 11776903 (Version 3)
Quarter: 2015Q4

REPORT INFORMATION
  Report Type: Spontaneous
  Country: ES (occurrence: ES)
  Receive Date: 20151125
  Receipt Date: 20151210
  Transmission Date: 20160304
  Serious: Yes (Hospitalization, Other)
  Sender: FDA-Public Use
  Company Number: ES-WATSON-2015-25790

PATIENT
  Age: 77 Year
  Sex: Male

DRUGS (1)
  1. TRIPTORELIN (UNKNOWN) [Suspect]
     Active Substance: TRIPTORELIN
     Indication: PROSTATE CANCER
     Dosage: 22.5 MG, 1/WEEK
     Route: 030

REACTIONS (5)
  - Hypoprolactinaemia [Unknown]
  - Adrenocorticotropic hormone deficiency [Unknown]
  - Inappropriate schedule of drug administration [Unknown]
  - Pituitary haemorrhage [Unknown]
  - Secondary hypogonadism [Unknown]
